FAERS Safety Report 7676763-9 (Version None)
Quarter: 2011Q3

REPORT INFORMATION
  Report Type: 
  Country: None (occurrence: None)
  Receive Date: 20110811
  Receipt Date: 20110804
  Transmission Date: 20111222
  Serious: Yes (Hospitalization, Other)
  Sender: FDA-Public Use
  Company Number: JP-PFIZER INC-2011135740

PATIENT
  Age: 69 Year
  Sex: Male

DRUGS (2)
  1. CELECOXIB [Suspect]
     Indication: OSTEOARTHRITIS
     Dosage: 100 MG, 2X/DAY
     Route: 048
     Dates: start: 20101203, end: 20110216
  2. RINDERON #1 [Concomitant]
     Indication: TENDONITIS
     Dosage: UNK
     Dates: start: 20101205, end: 20101205

REACTIONS (1)
  - MULTIPLE MYELOMA [None]
